FAERS Safety Report 9499429 (Version 1)
Quarter: 2013Q3

REPORT INFORMATION
  Report Type: Spontaneous
  Country: US (occurrence: None)
  Receive Date: 20130903
  Receipt Date: 20130903
  Transmission Date: 20140515
  Serious: Yes (Other)
  Sender: FDA-Public Use
  Company Number: None

PATIENT
  Age: 77 Year
  Sex: Male

DRUGS (1)
  1. XTANDI [Suspect]
     Indication: PROSTATE CANCER METASTATIC
     Dosage: 4 CAPS
     Route: 048
     Dates: start: 20130411

REACTIONS (3)
  - Haemoglobin decreased [None]
  - Haemorrhoidal haemorrhage [None]
  - Metastases to bone [None]
